FAERS Safety Report 5237167-1 (Version None)
Quarter: 2007Q1

REPORT INFORMATION
  Report Type: 
  Country: None (occurrence: None)
  Receive Date: 20070209
  Receipt Date: 20070125
  Transmission Date: 20070707
  Serious: Yes (Death)
  Sender: FDA-Public Use
  Company Number: 098

PATIENT
  Sex: Male

DRUGS (1)
  1. FAZACLO ODT [Suspect]
     Dosage: 200 MG PO DAILY
     Dates: start: 20060314, end: 20061211

REACTIONS (1)
  - DEATH [None]
